FAERS Safety Report 9592487 (Version 1)
Quarter: 2013Q4

REPORT INFORMATION
  Report Type: Spontaneous
  Country: US (occurrence: None)
  Receive Date: 20131003
  Receipt Date: 20131003
  Transmission Date: 20140711
  Serious: Yes (Hospitalization)
  Sender: FDA-Public Use
  Company Number: None

PATIENT
  Age: 57 Year
  Sex: Male
  Weight: 92.8 kg

DRUGS (8)
  1. LITHIUM [Suspect]
     Indication: SCHIZOAFFECTIVE DISORDER
     Route: 048
     Dates: start: 20121105, end: 20130520
  2. HALOPERIDOL [Concomitant]
  3. ZANTAC [Concomitant]
  4. LOVASTATIN [Concomitant]
  5. ENALAPRIL [Concomitant]
  6. ASPIRIN [Concomitant]
  7. HYPOTEARS [Concomitant]
  8. BENZTROPINE [Concomitant]

REACTIONS (6)
  - Gait disturbance [None]
  - Tremor [None]
  - Confusional state [None]
  - Dehydration [None]
  - Toxicity to various agents [None]
  - Blood creatinine increased [None]
